FAERS Safety Report 4357167-3 (Version None)
Quarter: 2004Q2

REPORT INFORMATION
  Report Type: 
  Country: None (occurrence: None)
  Receive Date: 20040511
  Receipt Date: 20040421
  Transmission Date: 20050107
  Serious: Yes (Other)
  Sender: FDA-Public Use
  Company Number: A03200401236

PATIENT
  Sex: Female

DRUGS (4)
  1. ELOXATIN [Suspect]
     Dosage: INTRAVENOUS NOS
     Route: 042
  2. AVASTIN [Suspect]
     Dosage: UNKNOWN
     Route: 065
  3. FLUOROURACIL [Suspect]
     Dosage: INTRAVENOUS NOS
     Route: 042
  4. LEUCOVORIN CALCIUM [Concomitant]

REACTIONS (2)
  - ANGINA PECTORIS [None]
  - ELECTROCARDIOGRAM ABNORMAL [None]
